FAERS Safety Report 17723277 (Version 1)
Quarter: 2020Q2

REPORT INFORMATION
  Report Type: Spontaneous
  Country: TW (occurrence: TW)
  Receive Date: 20200429
  Receipt Date: 20200429
  Transmission Date: 20200714
  Serious: Yes (Hospitalization)
  Sender: FDA-Public Use
  Company Number: TW-BAXTER-2020BAX008492

PATIENT
  Sex: Female

DRUGS (2)
  1. TISSEEL [Suspect]
     Active Substance: FIBRINOGEN HUMAN\THROMBIN HUMAN
     Indication: HAEMOSTASIS
     Route: 065
     Dates: start: 20190417
  2. TISSEEL [Suspect]
     Active Substance: FIBRINOGEN HUMAN\THROMBIN HUMAN
     Indication: TISSUE ADHESION PROPHYLAXIS

REACTIONS (5)
  - Drug ineffective [Unknown]
  - Vaginal haemorrhage [Unknown]
  - Vulvovaginal inflammation [Unknown]
  - Ureteric stenosis [Unknown]
  - Necrosis [Unknown]

NARRATIVE: CASE EVENT DATE: 20190507
